FAERS Safety Report 8584219-4 (Version None)
Quarter: 2012Q3

REPORT INFORMATION
  Report Type: 
  Country: None (occurrence: None)
  Receive Date: 20120810
  Receipt Date: 20120801
  Transmission Date: 20120928
  Serious: Yes (Hospitalization)
  Sender: FDA-Public Use
  Company Number: US-BIOGENIDEC-2012BI029540

PATIENT
  Sex: Female

DRUGS (2)
  1. TYSABRI [Suspect]
     Indication: MULTIPLE SCLEROSIS
     Route: 042
     Dates: start: 20071221, end: 20101022
  2. TYSABRI [Suspect]
     Route: 042
     Dates: start: 20110401

REACTIONS (7)
  - CONSTIPATION [None]
  - GASTROSTOMY TUBE INSERTION [None]
  - DEHYDRATION [None]
  - MIGRAINE [None]
  - VOMITING [None]
  - GASTROENTEROSTOMY [None]
  - URINARY TRACT INFECTION [None]
